FAERS Safety Report 11726197 (Version 3)
Quarter: 2016Q2

REPORT INFORMATION
  Report Type: Report from Study
  Country: GB (occurrence: GB)
  Receive Date: 20151112
  Receipt Date: 20160406
  Transmission Date: 20160815
  Serious: Yes (Hospitalization)
  Sender: FDA-Public Use
  Company Number: GB-ROCHE-1659263

PATIENT
  Age: 77 Year
  Sex: Female

DRUGS (2)
  1. RITUXIMAB [Suspect]
     Active Substance: RITUXIMAB
     Indication: RHEUMATOID ARTHRITIS
     Route: 065
     Dates: start: 20140527
  2. METHOTREXATE [Concomitant]
     Active Substance: METHOTREXATE
     Indication: RHEUMATOID ARTHRITIS

REACTIONS (4)
  - Chronic obstructive pulmonary disease [Recovered/Resolved]
  - Femur fracture [Unknown]
  - Lower respiratory tract infection [Recovered/Resolved]
  - Post procedural myocardial infarction [Unknown]

NARRATIVE: CASE EVENT DATE: 20141223
